FAERS Safety Report 10289440 (Version 1)
Quarter: 2014Q3

REPORT INFORMATION
  Report Type: Not Available
  Country: DE (occurrence: DE)
  Receive Date: 20140710
  Receipt Date: 20140710
  Transmission Date: 20150326
  Serious: No
  Sender: FDA-Public Use
  Company Number: DE-LUPIN PHARMACEUTICALS INC.-2013-01266

PATIENT
  Sex: Female

DRUGS (1)
  1. LAMOTRIGIN-HORMOSAN 100 MG DISPERS [Suspect]
     Active Substance: LAMOTRIGINE
     Indication: DEPRESSION
     Route: 065

REACTIONS (2)
  - Skin papilloma [Unknown]
  - Pruritus [Unknown]
